FAERS Safety Report 9154626 (Version 1)
Quarter: 2013Q1

REPORT INFORMATION
  Report Type: Spontaneous
  Country: US (occurrence: None)
  Receive Date: 20130206
  Receipt Date: 20130206
  Transmission Date: 20140127
  Serious: Yes (Other)
  Sender: FDA-Public Use
  Company Number: 2013POI057300006

PATIENT
  Age: 60 Year
  Sex: Male

DRUGS (1)
  1. NIFEDIPINE [Suspect]
     Route: 048
     Dates: start: 20121221, end: 20130107

REACTIONS (4)
  - Drug ineffective [None]
  - Blood pressure increased [None]
  - Heart rate increased [None]
  - Product substitution issue [None]
